FAERS Safety Report 6085414-9 (Version None)
Quarter: 2009Q1

REPORT INFORMATION
  Report Type: 
  Country: None (occurrence: None)
  Receive Date: 20090220
  Receipt Date: 20090209
  Transmission Date: 20090719
  Serious: Yes (Other)
  Sender: FDA-Public Use
  Company Number: GB-PFIZER INC-2009168446

PATIENT

DRUGS (4)
  1. AZITHROMYCIN [Suspect]
     Indication: CHLAMYDIAL INFECTION
     Dosage: 1 G, UNK
     Route: 048
     Dates: start: 20081204
  2. CLOTRIMAZOLE [Concomitant]
     Dosage: UNK
     Route: 067
     Dates: start: 20081204
  3. CLOTRIMAZOLE [Concomitant]
     Route: 061
  4. FOLIC ACID [Concomitant]
     Route: 048

REACTIONS (2)
  - ABORTION SPONTANEOUS [None]
  - MALAISE [None]
